FAERS Safety Report 6140075-5 (Version None)
Quarter: 2009Q2

REPORT INFORMATION
  Report Type: 
  Country: None (occurrence: None)
  Receive Date: 20090401
  Receipt Date: 20090319
  Transmission Date: 20091009
  Serious: Yes (Other)
  Sender: FDA-Public Use
  Company Number: KR-ELI_LILLY_AND_COMPANY-KR200903005230

PATIENT
  Age: 36 Year
  Sex: Female

DRUGS (19)
  1. ZYPREXA [Suspect]
     Indication: HALLUCINATION, AUDITORY
     Dosage: 5 MG, DAILY (1/D)
     Route: 065
  2. ZYPREXA [Suspect]
     Dosage: 15 MG, DAILY (1/D)
     Route: 065
  3. ZYPREXA [Suspect]
     Dosage: 20 MG, DAILY (1/D)
     Route: 065
  4. ZYPREXA [Suspect]
     Dosage: 20 MG, DAILY (1/D)
     Route: 065
  5. ZYPREXA [Suspect]
     Dosage: 30 MG, DAILY (1/D)
     Route: 065
  6. ZYPREXA [Suspect]
     Dosage: 15 MG, DAILY (1/D)
     Route: 065
  7. ZYPREXA [Suspect]
     Dosage: 20 MG, DAILY (1/D)
     Route: 065
  8. CLONAZEPAM [Concomitant]
     Dosage: 0.75 MG, DAILY (1/D)
     Route: 065
  9. CLONAZEPAM [Concomitant]
     Dosage: 1 G, DAILY (1/D)
     Route: 065
  10. CARBAMAZEPINE [Concomitant]
     Dosage: 300 MG, DAILY (1/D)
     Route: 065
  11. GABAPENTIN [Concomitant]
     Dosage: 600 MG, DAILY (1/D)
     Route: 065
  12. ZOLPIDEM [Concomitant]
     Dosage: 10 MG, DAILY (1/D)
     Route: 065
  13. ROPINIROLE [Concomitant]
     Dosage: 1 MG, DAILY (1/D)
     Route: 065
  14. AMISULPRIDE [Concomitant]
     Dosage: 1000 MG, DAILY (1/D)
     Route: 065
  15. HALOPERIDOL [Concomitant]
     Dosage: 6 MG, DAILY (1/D)
     Route: 065
  16. BENZTROPINE MESYLATE [Concomitant]
     Dosage: 1 MG, DAILY (1/D)
     Route: 065
  17. CLOZAPINE [Concomitant]
     Dosage: UNK, DAILY (1/D)
     Route: 065
  18. CLOZAPINE [Concomitant]
     Dosage: 200 MG, DAILY (1/D)
     Route: 065
  19. CLOZAPINE [Concomitant]
     Dosage: 200 MG, DAILY (1/D)
     Route: 065

REACTIONS (3)
  - HALLUCINATION, AUDITORY [None]
  - OVERDOSE [None]
  - RESTLESS LEGS SYNDROME [None]
